FAERS Safety Report 4723256-4 (Version None)
Quarter: 2005Q3

REPORT INFORMATION
  Report Type: 
  Country: None (occurrence: None)
  Receive Date: 20050719
  Receipt Date: 20040903
  Transmission Date: 20060218
  Serious: Yes (Hospitalization)
  Sender: FDA-Public Use
  Company Number: 204218

PATIENT
  Age: 50 Year
  Sex: Female
  Weight: 65.7716 kg

DRUGS (3)
  1. AVONEX [Suspect]
     Indication: MULTIPLE SCLEROSIS
     Dosage: 30 UG; QW; IM
     Route: 030
     Dates: start: 19980101, end: 20030801
  2. AVONEX [Suspect]
     Indication: MULTIPLE SCLEROSIS
     Dosage: 30 UG; QW; IM
     Route: 030
     Dates: start: 20030801
  3. ANTIDEPRESSANT MEDICATION (NOS) [Concomitant]

REACTIONS (7)
  - ANXIETY [None]
  - DEPRESSION [None]
  - DERMATITIS CONTACT [None]
  - INFLUENZA LIKE ILLNESS [None]
  - INJECTION SITE ERYTHEMA [None]
  - MUSCULOSKELETAL STIFFNESS [None]
  - STRESS [None]
